FAERS Safety Report 8095980-X (Version None)
Quarter: 2012Q1

REPORT INFORMATION
  Report Type: 
  Country: None (occurrence: None)
  Receive Date: 20120129
  Receipt Date: 20111227
  Transmission Date: 20120608
  Serious: No
  Sender: FDA-Public Use
  Company Number: US-ABBOTT-11P-163-0886985-00

PATIENT
  Age: 49 Year
  Sex: Male

DRUGS (9)
  1. CADUET [Concomitant]
     Indication: BLOOD CHOLESTEROL
  2. METOPROLOL TARTRATE [Concomitant]
     Indication: HYPERTENSION
  3. DIOVAN [Concomitant]
     Indication: HYPERTENSION
  4. METHOTREXATE [Concomitant]
     Indication: ARTHRITIS
     Dosage: 13 IN 1 WEEK
  5. LOW DOSE BAYER [Concomitant]
     Indication: BLOOD PRESSURE
  6. UROXATRAL [Concomitant]
     Indication: ILL-DEFINED DISORDER
  7. LOW DOSE BAYER [Concomitant]
     Indication: CARDIOVASCULAR EVENT PROPHYLAXIS
     Dosage: DAILY
  8. HUMIRA [Suspect]
     Indication: PSORIATIC ARTHROPATHY
     Dates: start: 20110901
  9. INDOMETHACIN [Concomitant]
     Indication: ARTHRITIS

REACTIONS (3)
  - DYSPNOEA [None]
  - JOINT SWELLING [None]
  - OEDEMA PERIPHERAL [None]
